FAERS Safety Report 18559824 (Version 1)
Quarter: 2020Q4

REPORT INFORMATION
  Report Type: Spontaneous
  Country: CN (occurrence: CN)
  Receive Date: 20201130
  Receipt Date: 20201130
  Transmission Date: 20210114
  Serious: Yes (Hospitalization, Other)
  Sender: FDA-Public Use
  Company Number: CN-PFIZER INC-2020465797

PATIENT
  Age: 58 Year
  Sex: Male
  Weight: 87.5 kg

DRUGS (4)
  1. NUO XIN [Suspect]
     Active Substance: CISPLATIN
     Indication: LYMPHOMA
     Dosage: 200 MG, 1X/DAY
     Route: 041
     Dates: start: 20201105, end: 20201106
  2. SODIUM CHLORIDE. [Concomitant]
     Active Substance: SODIUM CHLORIDE
     Dosage: 500 ML, 2X/DAY
     Route: 041
     Dates: start: 20201106, end: 20201107
  3. CYTOSAR [Suspect]
     Active Substance: CYTARABINE
     Indication: LYMPHOMA
     Dosage: 0.4 G, 2X/DAY
     Route: 041
     Dates: start: 20201106, end: 20201107
  4. SODIUM CHLORIDE. [Concomitant]
     Active Substance: SODIUM CHLORIDE
     Indication: VEHICLE SOLUTION USE
     Dosage: 500 ML, 1X/DAY
     Route: 041
     Dates: start: 20201105, end: 20201106

REACTIONS (3)
  - Agranulocytosis [Recovering/Resolving]
  - Asthenia [Recovering/Resolving]
  - Myelosuppression [Recovering/Resolving]

NARRATIVE: CASE EVENT DATE: 20201112
